FAERS Safety Report 4504995-7 (Version None)
Quarter: 2004Q4

REPORT INFORMATION
  Report Type: 
  Country: None (occurrence: None)
  Receive Date: 20041116
  Receipt Date: 20041029
  Transmission Date: 20050328
  Serious: Yes (Hospitalization)
  Sender: FDA-Public Use
  Company Number: DSA_25307_2004

PATIENT
  Age: 63 Year
  Sex: Female

DRUGS (2)
  1. TEMESTA [Suspect]
     Dosage: DF Q DAY PO
     Route: 048
     Dates: end: 20040201
  2. STILNOX [Suspect]
     Dosage: 10 MG Q DAY PO
     Route: 048
     Dates: end: 20040201

REACTIONS (3)
  - DISTURBANCE IN ATTENTION [None]
  - FALL [None]
  - SOMNOLENCE [None]
